FAERS Safety Report 6135773-3 (Version None)
Quarter: 2009Q1

REPORT INFORMATION
  Report Type: 
  Country: None (occurrence: None)
  Receive Date: 20090327
  Receipt Date: 20090323
  Transmission Date: 20090719
  Serious: Yes (Other)
  Sender: FDA-Public Use
  Company Number: US-GILEAD-2009-0020143

PATIENT
  Sex: Female
  Weight: 122.58 kg

DRUGS (8)
  1. LETAIRIS [Suspect]
     Indication: PULMONARY ARTERIAL HYPERTENSION
     Route: 048
     Dates: start: 20071116
  2. COUMADIN [Concomitant]
  3. AMOXICILLIN [Concomitant]
  4. DIGOXIN [Concomitant]
  5. RYTHMOL [Concomitant]
  6. CYMBALTA [Concomitant]
  7. COREG [Concomitant]
  8. ASACOL [Concomitant]

REACTIONS (4)
  - OEDEMA [None]
  - PULMONARY HYPERTENSION [None]
  - THERAPEUTIC RESPONSE DECREASED [None]
  - UNEVALUABLE EVENT [None]
